FAERS Safety Report 9957059 (Version 1)
Quarter: 2014Q1

REPORT INFORMATION
  Report Type: Spontaneous
  Country: US (occurrence: US)
  Receive Date: 20140304
  Receipt Date: 20140304
  Transmission Date: 20141002
  Serious: No
  Sender: FDA-Public Use
  Company Number: US-ABBVIE-13P-163-1099793-00

PATIENT
  Age: 24 Year
  Sex: Male
  Weight: 70.37 kg

DRUGS (1)
  1. HUMIRA [Suspect]
     Indication: PSORIATIC ARTHROPATHY
     Dates: start: 201301

REACTIONS (2)
  - Poor quality drug administered [Not Recovered/Not Resolved]
  - Drug ineffective [Not Recovered/Not Resolved]
